FAERS Safety Report 11293439 (Version 2)
Quarter: 2015Q3

REPORT INFORMATION
  Report Type: Spontaneous
  Country: IT (occurrence: IT)
  Receive Date: 20150722
  Receipt Date: 20150730
  Transmission Date: 20151125
  Serious: Yes (Hospitalization)
  Sender: FDA-Public Use
  Company Number: PHHY2015IT084483

PATIENT
  Age: 66 Year
  Sex: Female

DRUGS (2)
  1. LEXOTAN [Suspect]
     Active Substance: BROMAZEPAM
     Indication: ANXIETY
     Dosage: 50 MG, QD
     Route: 048
     Dates: start: 20150702, end: 20150702
  2. ZOLPIDEM [Suspect]
     Active Substance: ZOLPIDEM\ZOLPIDEM TARTRATE
     Indication: INSOMNIA
     Dosage: 300 MG, QD
     Route: 048
     Dates: start: 20150702, end: 20150702

REACTIONS (1)
  - Poisoning [Unknown]

NARRATIVE: CASE EVENT DATE: 20150702
